FAERS Safety Report 9645263 (Version 2)
Quarter: 2013Q4

REPORT INFORMATION
  Report Type: Spontaneous
  Country: US (occurrence: None)
  Receive Date: 20131023
  Receipt Date: 20131104
  Transmission Date: 20140711
  Serious: Yes (Other)
  Sender: FDA-Public Use
  Company Number: 2013P1020192

PATIENT
  Age: 12 Year
  Sex: Female

DRUGS (1)
  1. MYORISAN 40 MG [Suspect]
     Indication: ACNE
     Dates: start: 20130711, end: 20130812

REACTIONS (4)
  - Emotional disorder [None]
  - Lacrimation increased [None]
  - Aggression [None]
  - Drug dose omission [None]
